FAERS Safety Report 12099747 (Version 1)
Quarter: 2016Q1

REPORT INFORMATION
  Report Type: Spontaneous
  Country: US (occurrence: US)
  Receive Date: 20160222
  Receipt Date: 20160222
  Transmission Date: 20160526
  Serious: Yes (Other)
  Sender: FDA-Public Use
  Company Number: US-NOVOPROD-480634

PATIENT
  Age: 61 Year
  Sex: Female

DRUGS (1)
  1. NOVOLOG [Suspect]
     Active Substance: INSULIN ASPART
     Indication: PRODUCT USED FOR UNKNOWN INDICATION
     Dosage: 10 U, IF SUGARS ARE OVER 150 MG/DL
     Route: 058

REACTIONS (12)
  - Weight decreased [Unknown]
  - Fatigue [Unknown]
  - Constipation [Unknown]
  - Fluid intake reduced [Unknown]
  - Blood cholesterol increased [Unknown]
  - Increased appetite [Unknown]
  - Blindness [Unknown]
  - Boredom [Unknown]
  - Glycosylated haemoglobin increased [Unknown]
  - Gastric bypass [Unknown]
  - Breast cancer [Unknown]
  - Anger [Unknown]

NARRATIVE: CASE EVENT DATE: 20150407
